FAERS Safety Report 7718614-X (Version None)
Quarter: 2011Q3

REPORT INFORMATION
  Report Type: 
  Country: None (occurrence: None)
  Receive Date: 20110824
  Receipt Date: 20110811
  Transmission Date: 20111222
  Serious: Yes (Other)
  Sender: FDA-Public Use
  Company Number: 2011SP033251

PATIENT
  Age: 21 Year
  Sex: Female
  Weight: 65.5 kg

DRUGS (2)
  1. IMPLANON [Suspect]
  2. IMPLANON [Suspect]
     Indication: CONTRACEPTION
     Dosage: 68 MG;UNK;SBDE
     Route: 059
     Dates: start: 20090107, end: 20110713

REACTIONS (7)
  - ABDOMINAL PAIN LOWER [None]
  - MATERNAL EXPOSURE DURING PREGNANCY [None]
  - DYSMENORRHOEA [None]
  - DEVICE DISLOCATION [None]
  - PREGNANCY WITH IMPLANT CONTRACEPTIVE [None]
  - ABORTION COMPLETE [None]
  - MENORRHAGIA [None]
